FAERS Safety Report 8680248 (Version 2)
Quarter: 2012Q4

REPORT INFORMATION
  Report Type: 
  Country: US (occurrence: US)
  Receive Date: 20120724
  Receipt Date: 20121108
  Transmission Date: 20130627
  Serious: Yes (Hospitalization)
  Sender: FDA-Public Use
  Company Number: US-UCBSA-061900

PATIENT
  Age: 45 Year
  Sex: Female

DRUGS (9)
  1. CIMZIA [Suspect]
     Indication: CROHN^S DISEASE
     Dates: start: 20110427
  2. KCL [Concomitant]
  3. PANTOPRAZOLE [Concomitant]
  4. VENLAFAXINE [Concomitant]
  5. ATORVASTATIN [Concomitant]
  6. CLONAZEPAM [Concomitant]
  7. GABAPENTIN [Concomitant]
  8. PENTASA [Concomitant]
  9. CARAFATE [Concomitant]

REACTIONS (2)
  - Cerebrovascular accident [Recovered/Resolved]
  - Carotid artery thrombosis [Unknown]
